FAERS Safety Report 9191167 (Version 2)
Quarter: 2013Q3

REPORT INFORMATION
  Report Type: Report from Study
  Country: JP (occurrence: JP)
  Receive Date: 20130326
  Receipt Date: 20130923
  Transmission Date: 20140515
  Serious: Yes (Other)
  Sender: FDA-Public Use
  Company Number: PHHY2013JP029149

PATIENT
  Age: 76 Year
  Sex: Female

DRUGS (16)
  1. AMN107 [Suspect]
     Indication: CHRONIC MYELOID LEUKAEMIA
     Dosage: 800 MG, DAILY
     Route: 048
     Dates: start: 20091106
  2. AMN107 [Suspect]
     Dosage: 800 MG, DAILY
     Route: 048
     Dates: start: 20100122, end: 20100127
  3. AMN107 [Suspect]
     Dosage: 200 MG, DAILY
     Route: 048
     Dates: start: 20100128, end: 20100216
  4. AMN107 [Suspect]
     Dosage: 400 MG, DAILY
     Route: 048
     Dates: start: 20100217, end: 20100330
  5. AMN107 [Suspect]
     Dosage: 600 MG, DAILY
     Route: 048
     Dates: start: 20100401, end: 20100723
  6. PRIMPERAN [Concomitant]
     Route: 041
     Dates: start: 20091112, end: 20091115
  7. ATARAX-P [Concomitant]
     Dates: start: 20091112, end: 20091115
  8. METHYCOBAL [Concomitant]
     Dosage: UNK UKN, UNK
     Route: 041
     Dates: start: 20091112, end: 20091115
  9. ADETPHOS-L [Concomitant]
     Dosage: UNK UKN, UNK
     Route: 041
     Dates: start: 20091112, end: 20091115
  10. MEYLON [Concomitant]
     Dosage: UNK UKN, UNK
     Dates: start: 20091113, end: 20091115
  11. MAXIPIME [Concomitant]
     Dosage: UNK UKN, UNK
     Route: 041
     Dates: start: 20091115, end: 20091118
  12. OZEX [Concomitant]
     Dosage: UNK UKN, UNK
     Route: 048
     Dates: start: 20091118, end: 20091127
  13. ADALAT [Concomitant]
     Indication: PROPHYLAXIS
     Dosage: UNK UKN, UNK
     Dates: start: 20091112, end: 20091125
  14. CALONAL [Concomitant]
     Dosage: UNK UKN, UNK
     Route: 048
     Dates: start: 20091115
  15. LAXOBERON [Concomitant]
     Indication: PROPHYLAXIS
     Dosage: UNK UKN, UNK
     Dates: start: 20091118
  16. ISOSORBIDE DINITRATE [Concomitant]
     Indication: PROPHYLAXIS
     Dosage: UNK UKN, UNK
     Dates: start: 20091112

REACTIONS (1)
  - Hepatic function abnormal [Recovered/Resolved with Sequelae]
